FAERS Safety Report 25840135 (Version 2)
Quarter: 2025Q4

REPORT INFORMATION
  Report Type: Spontaneous
  Country: EU (occurrence: EU)
  Receive Date: 20250924
  Receipt Date: 20251001
  Transmission Date: 20260118
  Serious: Yes (Disabling, Other)
  Sender: Kenvue
  Company Number: EU-ELI_LILLY_AND_COMPANY-ES202508011942

PATIENT

DRUGS (8)
  1. LOPERAMIDE HYDROCHLORIDE [Suspect]
     Active Substance: LOPERAMIDE HYDROCHLORIDE
     Indication: Faeces soft
     Dosage: UNK, UNKNOWN
     Route: 065
  2. LOPERAMIDE HYDROCHLORIDE [Suspect]
     Active Substance: LOPERAMIDE HYDROCHLORIDE
     Indication: Diarrhoea
  3. ABEMACICLIB [Suspect]
     Active Substance: ABEMACICLIB
     Indication: Product used for unknown indication
     Dosage: 150 MG, UNKNOWN
     Route: 048
     Dates: start: 20250801, end: 20250812
  4. ABEMACICLIB [Suspect]
     Active Substance: ABEMACICLIB
     Dosage: 100 MG, UNKNOWN
     Route: 048
     Dates: start: 20250821
  5. ABEMACICLIB [Suspect]
     Active Substance: ABEMACICLIB
     Dosage: 100 MG, UNKNOWN
     Route: 048
  6. LETROZOLE [Suspect]
     Active Substance: LETROZOLE
     Indication: Product used for unknown indication
     Dosage: UNK, UNKNOWN
     Route: 065
  7. METFORMIN [Concomitant]
     Active Substance: METFORMIN HYDROCHLORIDE
     Indication: Glucose tolerance impaired
     Dosage: UNK
     Route: 065
  8. SIMVASTATIN [Concomitant]
     Active Substance: SIMVASTATIN
     Indication: Glucose tolerance impaired
     Dosage: UNK
     Route: 065

REACTIONS (27)
  - Arthralgia [Unknown]
  - Hepatotoxicity [Unknown]
  - Abdominal pain [Recovering/Resolving]
  - Muscle spasms [Recovering/Resolving]
  - Apathy [Not Recovered/Not Resolved]
  - Defaecation urgency [Recovered/Resolved]
  - Anal incontinence [Not Recovered/Not Resolved]
  - Pyrexia [Not Recovered/Not Resolved]
  - Somnolence [Recovering/Resolving]
  - Faeces soft [Recovered/Resolved]
  - Fluid intake reduced [Recovering/Resolving]
  - Dysstasia [Unknown]
  - Abdominal pain upper [Recovered/Resolved]
  - Glucose tolerance impaired [Recovering/Resolving]
  - Gait disturbance [Unknown]
  - Feeling abnormal [Recovered/Resolved]
  - Myalgia [Unknown]
  - Asthenia [Not Recovered/Not Resolved]
  - Diarrhoea [Recovered/Resolved]
  - Decreased appetite [Recovering/Resolving]
  - Hepatic steatosis [Unknown]
  - Irritability [Recovering/Resolving]
  - Feeling abnormal [Recovering/Resolving]
  - Transaminases increased [Recovering/Resolving]
  - Weight decreased [Recovering/Resolving]
  - Constipation [Recovering/Resolving]
  - Nausea [Not Recovered/Not Resolved]

NARRATIVE: CASE EVENT DATE: 20250812
